FAERS Safety Report 20618244 (Version 6)
Quarter: 2025Q2

REPORT INFORMATION
  Report Type: Spontaneous
  Country: BR (occurrence: BR)
  Receive Date: 20220321
  Receipt Date: 20250523
  Transmission Date: 20250717
  Serious: Yes (Hospitalization, Other)
  Sender: BIOGEN
  Company Number: BR-BIOGENIDEC-2015BI074512

PATIENT
  Age: 27 Year
  Sex: Female
  Weight: 98 kg

DRUGS (20)
  1. AVONEX [Suspect]
     Active Substance: INTERFERON BETA-1A
     Indication: Multiple sclerosis
     Route: 050
     Dates: start: 20110930
  2. AVONEX [Suspect]
     Active Substance: INTERFERON BETA-1A
  3. AVONEX [Suspect]
     Active Substance: INTERFERON BETA-1A
  4. AVONEX [Suspect]
     Active Substance: INTERFERON BETA-1A
  5. AVONEX [Suspect]
     Active Substance: INTERFERON BETA-1A
  6. AVONEX [Suspect]
     Active Substance: INTERFERON BETA-1A
  7. AVONEX [Suspect]
     Active Substance: INTERFERON BETA-1A
  8. AVONEX [Suspect]
     Active Substance: INTERFERON BETA-1A
  9. AVONEX [Suspect]
     Active Substance: INTERFERON BETA-1A
  10. AVONEX [Suspect]
     Active Substance: INTERFERON BETA-1A
  11. AVONEX [Suspect]
     Active Substance: INTERFERON BETA-1A
  12. AVONEX [Suspect]
     Active Substance: INTERFERON BETA-1A
  13. AVONEX [Suspect]
     Active Substance: INTERFERON BETA-1A
  14. AVONEX [Suspect]
     Active Substance: INTERFERON BETA-1A
     Indication: Multiple sclerosis
     Route: 050
     Dates: start: 2011, end: 201608
  15. AVONEX [Suspect]
     Active Substance: INTERFERON BETA-1A
     Route: 050
     Dates: start: 201110, end: 201605
  16. AVONEX [Suspect]
     Active Substance: INTERFERON BETA-1A
  17. AVONEX [Suspect]
     Active Substance: INTERFERON BETA-1A
  18. DESOGESTREL [Concomitant]
     Active Substance: DESOGESTREL
     Indication: Decreased immune responsiveness
     Route: 050
  19. IBUPROFEN [Concomitant]
     Active Substance: IBUPROFEN
     Indication: Premedication
     Route: 050
  20. LIDOCAINE [Concomitant]
     Active Substance: LIDOCAINE
     Indication: Premedication
     Route: 050

REACTIONS (18)
  - Thyroid disorder [Recovered/Resolved]
  - Renal cancer [Not Recovered/Not Resolved]
  - Autoimmune thyroiditis [Not Recovered/Not Resolved]
  - Hypothyroidism [Recovered/Resolved]
  - Pharyngitis [Not Recovered/Not Resolved]
  - Constipation [Recovered/Resolved]
  - Anal fissure [Recovered/Resolved]
  - Vascular rupture [Recovered/Resolved]
  - Injection site discolouration [Recovered/Resolved]
  - Hyperaesthesia [Recovered/Resolved]
  - Lymphangioma [Unknown]
  - Muscle fatigue [Recovered/Resolved]
  - Chills [Unknown]
  - Pain in extremity [Recovered/Resolved]
  - Influenza like illness [Recovered/Resolved]
  - Muscular weakness [Recovered/Resolved]
  - Injection site pain [Recovered/Resolved]
  - Depressed mood [Recovered/Resolved]

NARRATIVE: CASE EVENT DATE: 20111001
